FAERS Safety Report 6312881-5 (Version None)
Quarter: 2009Q3

REPORT INFORMATION
  Report Type: 
  Country: None (occurrence: None)
  Receive Date: 20090814
  Receipt Date: 20090728
  Transmission Date: 20100115
  Serious: Yes (Hospitalization, Other)
  Sender: FDA-Public Use
  Company Number: QUU309651

PATIENT
  Sex: Female
  Weight: 32.4 kg

DRUGS (17)
  1. KINERET [Suspect]
     Indication: JUVENILE ARTHRITIS
     Dosage: 50 MG SUBCUTANEOUS
     Route: 058
     Dates: start: 20071018, end: 20080416
  2. THALOMID [Suspect]
     Indication: JUVENILE ARTHRITIS
     Dosage: 50 MG ORAL
     Route: 048
     Dates: start: 20080401, end: 20080417
  3. METHOTREXATE (WYETH LEDERLE) [Suspect]
     Indication: JUVENILE ARTHRITIS
     Dosage: 0.6 ML 1 X WEEK SUBCUTANEOUS
     Route: 058
     Dates: start: 20070507, end: 20080314
  4. ACRIVASTINE [Concomitant]
  5. GENOTROPIN [Concomitant]
  6. LANSOPRAZOLE [Concomitant]
  7. ACETAMINOPHEN [Concomitant]
  8. HORMONES NOS [Concomitant]
  9. NAPROXEN [Concomitant]
  10. IBUPROFEN [Concomitant]
  11. PREDNISONE TAB [Concomitant]
  12. ZYRTEC [Concomitant]
  13. BENADRYL [Concomitant]
  14. HYDROXYZINE [Concomitant]
  15. CYCLOSPORINE [Concomitant]
  16. CEFTRIAXONE [Concomitant]
  17. VANCOMYCIN [Concomitant]

REACTIONS (22)
  - ABDOMINAL DISTENSION [None]
  - ALANINE AMINOTRANSFERASE INCREASED [None]
  - ARTHRITIS [None]
  - ASPARTATE AMINOTRANSFERASE INCREASED [None]
  - ATELECTASIS [None]
  - BLOOD PRESSURE DECREASED [None]
  - CONDITION AGGRAVATED [None]
  - DERMATITIS [None]
  - HAEMOGLOBIN DECREASED [None]
  - HISTIOCYTOSIS HAEMATOPHAGIC [None]
  - INJECTION SITE PRURITUS [None]
  - INJECTION SITE WARMTH [None]
  - JUVENILE ARTHRITIS [None]
  - MALAISE [None]
  - OFF LABEL USE [None]
  - PAIN IN EXTREMITY [None]
  - PRURITUS [None]
  - PYREXIA [None]
  - RASH ERYTHEMATOUS [None]
  - SKIN PLAQUE [None]
  - THROMBOCYTOPENIA [None]
  - VOMITING [None]
